FAERS Safety Report 19114435 (Version 1)
Quarter: 2021Q2

REPORT INFORMATION
  Report Type: Other
  Country: US (occurrence: US)
  Receive Date: 20210408
  Receipt Date: 20210408
  Transmission Date: 20210717
  Serious: Yes (Other)
  Sender: FDA-Public Use
  Company Number: US-GUTHY-RENKER, LLC-2109101

PATIENT
  Age: 36 Year
  Sex: Female

DRUGS (2)
  1. MEANINGFUL BEAUTY CINDY CRAWFORD SKIN BRIGHTENING DECOLLETE AND NECK TREATMENT SPF 15 [Suspect]
     Active Substance: AVOBENZONE\OCTINOXATE\OCTISALATE\OXYBENZONE
  2. MEANINGFUL BEAUTY CINDY CRAWFORD ANTI?AGING DAY CREME WITH ENVIRONMENTAL PROTECTION BROAD SPECTRUM SPF 30 [Suspect]
     Active Substance: AVOBENZONE\HOMOSALATE\OCTISALATE\OXYBENZONE

REACTIONS (2)
  - Throat tightness [None]
  - Urticaria [Recovered/Resolved]

NARRATIVE: CASE EVENT DATE: 20200301
